FAERS Safety Report 4629925-9 (Version None)
Quarter: 2005Q2

REPORT INFORMATION
  Report Type: 
  Country: None (occurrence: None)
  Receive Date: 20050408
  Receipt Date: 20050222
  Transmission Date: 20051028
  Serious: Yes (Other)
  Sender: FDA-Public Use
  Company Number: JP-ROCHE-396051

PATIENT
  Age: 55 Year
  Sex: Male

DRUGS (9)
  1. TORSEMIDE [Suspect]
     Indication: HYPERTENSION
     Route: 048
     Dates: start: 20040901, end: 20041124
  2. BEZATOL SR [Suspect]
     Indication: HYPERTRIGLYCERIDAEMIA
     Route: 048
     Dates: start: 20020515, end: 20041112
  3. BASEN [Concomitant]
     Indication: DIABETES MELLITUS
     Route: 048
     Dates: start: 20010912
  4. NORVASC [Concomitant]
     Indication: HYPERTENSION
     Route: 048
     Dates: start: 20010912
  5. ACECOL [Concomitant]
     Indication: HYPERTENSION
     Route: 048
     Dates: start: 20011018
  6. CARDENALIN [Concomitant]
     Indication: HYPERTENSION
     Route: 048
     Dates: start: 20040425
  7. PENFILL 30R [Concomitant]
     Route: 042
  8. NOVORAPID [Concomitant]
     Indication: DIABETES MELLITUS
     Dosage: THERAPY WAS REPORTED AS 4UT
     Route: 058
     Dates: start: 20040707
  9. NOVOLIN [Concomitant]
     Indication: DIABETES MELLITUS
     Dosage: REPORTED TRADE NAME WAS NOVOLIN 30R (INSULIN INJECTION, BIPHASIC) DOSE WAS REPORTED AS 54UT
     Route: 058
     Dates: start: 20010711

REACTIONS (2)
  - DEHYDRATION [None]
  - RHABDOMYOLYSIS [None]
